FAERS Safety Report 18180557 (Version 1)
Quarter: 2020Q3

REPORT INFORMATION
  Report Type: Spontaneous
  Country: US (occurrence: US)
  Receive Date: 20200820
  Receipt Date: 20200820
  Transmission Date: 20201103
  Serious: No
  Sender: FDA-Public Use
  Company Number: None

PATIENT
  Age: 55 Year
  Sex: Male

DRUGS (2)
  1. BLUMEN CLEAR ADVANCED HAND SANITIZER [Suspect]
     Active Substance: ALCOHOL
     Route: 061
  2. BLUMEN ADVANCED HAND SANITIZER [Suspect]
     Active Substance: ALCOHOL

REACTIONS (2)
  - Dermatitis contact [None]
  - Exposure to toxic agent [None]

NARRATIVE: CASE EVENT DATE: 20200725
